FAERS Safety Report 4436311-3 (Version None)
Quarter: 2004Q3

REPORT INFORMATION
  Report Type: 
  Country: None (occurrence: None)
  Receive Date: 20040830
  Receipt Date: 20040727
  Transmission Date: 20050211
  Serious: No
  Sender: FDA-Public Use
  Company Number: US-BRISTOL-MYERS SQUIBB COMPANY-12652202

PATIENT
  Age: 60 Year
  Sex: Male
  Weight: 100 kg

DRUGS (6)
  1. ERBITUX [Suspect]
     Indication: SMALL INTESTINE CARCINOMA
     Dosage: 1ST DOSE
     Route: 042
     Dates: start: 20040721, end: 20040721
  2. ANZEMET [Concomitant]
     Indication: PREMEDICATION
     Route: 048
     Dates: start: 20040721, end: 20040721
  3. BENADRYL [Concomitant]
     Indication: PREMEDICATION
     Route: 042
     Dates: start: 20040721, end: 20040721
  4. SOLU-MEDROL [Concomitant]
     Indication: PREMEDICATION
     Route: 042
     Dates: start: 20040721, end: 20040721
  5. IRINOTECAN [Concomitant]
     Route: 042
     Dates: start: 20040722, end: 20040722
  6. PREVACID [Concomitant]

REACTIONS (1)
  - RASH [None]
